FAERS Safety Report 24941632 (Version 2)
Quarter: 2025Q1

REPORT INFORMATION
  Report Type: Report from Study
  Country: US (occurrence: US)
  Receive Date: 20250207
  Receipt Date: 20250317
  Transmission Date: 20250408
  Serious: Yes (Death, Other)
  Sender: ACADIA PHARMACEUTICALS
  Company Number: US-ACADIA PHARMACEUTICALS INC.-ACA-2025-PIM-000834

PATIENT
  Age: 84 Year
  Sex: Male

DRUGS (12)
  1. NUPLAZID [Suspect]
     Active Substance: PIMAVANSERIN TARTRATE
     Indication: Parkinson^s disease
     Dosage: 10 MILLIGRAM, QD
     Route: 048
     Dates: start: 20240925, end: 20250114
  2. CLINDAMYCIN [Concomitant]
     Active Substance: CLINDAMYCIN
     Dosage: 75 MILLILITER, QD
  3. KETOCONAZOLE [Concomitant]
     Active Substance: KETOCONAZOLE
  4. MELATONIN [Concomitant]
     Active Substance: MELATONIN
  5. MEMANTINE [Concomitant]
     Active Substance: MEMANTINE
  6. POLYMYXIN B -TRIMETHOPRIM OPHTHA. [Concomitant]
  7. RIVASTIGMINE [Concomitant]
     Active Substance: RIVASTIGMINE
     Dosage: 4.6 MILLIGRAM, QD
  8. RYTARY [Concomitant]
     Active Substance: CARBIDOPA\LEVODOPA
  9. TAMSULOSIN [Concomitant]
     Active Substance: TAMSULOSIN
  10. VITAMIN B12 [Concomitant]
     Active Substance: CYANOCOBALAMIN
  11. VITAMIN D NOS [Concomitant]
     Active Substance: CHOLECALCIFEROL\ERGOCALCIFEROL
  12. ZENPEP [Concomitant]
     Active Substance: PANCRELIPASE AMYLASE\PANCRELIPASE LIPASE\PANCRELIPASE PROTEASE

REACTIONS (2)
  - COVID-19 [Fatal]
  - Urinary tract infection [Fatal]

NARRATIVE: CASE EVENT DATE: 20250114
